FAERS Safety Report 10211632 (Version 2)
Quarter: 2014Q4

REPORT INFORMATION
  Report Type: Spontaneous
  Country: FR (occurrence: FR)
  Receive Date: 20140602
  Receipt Date: 20141006
  Transmission Date: 20150528
  Serious: Yes (Death, Life-Threatening, Hospitalization, Other)
  Sender: FDA-Public Use
  Company Number: FR-ASTRAZENECA-2014SE36677

PATIENT
  Age: 18486 Day
  Sex: Female

DRUGS (3)
  1. DIPRIVAN [Suspect]
     Active Substance: PROPOFOL
     Indication: INDUCTION OF ANAESTHESIA
     Route: 042
     Dates: start: 20140402, end: 20140402
  2. SUFENTANIL [Suspect]
     Active Substance: SUFENTANIL
     Indication: INDUCTION OF ANAESTHESIA
     Route: 042
     Dates: start: 20140402, end: 20140402
  3. SUXAMETHONIUM BIOCODEX [Suspect]
     Active Substance: SUCCINYLCHOLINE CHLORIDE
     Indication: INDUCTION OF ANAESTHESIA
     Route: 042
     Dates: start: 20140402, end: 20140402

REACTIONS (13)
  - Cardiac arrest [Fatal]
  - Metabolic acidosis [Recovering/Resolving]
  - Liver function test abnormal [Unknown]
  - Bronchospasm [Unknown]
  - Wheezing [Unknown]
  - Renal tubular necrosis [Unknown]
  - Brain oedema [Fatal]
  - Erythema [Unknown]
  - Shock [Fatal]
  - Escherichia infection [Unknown]
  - Gastrointestinal ischaemia [Fatal]
  - Renal failure [Unknown]
  - Lung disorder [Unknown]

NARRATIVE: CASE EVENT DATE: 20140402
